FAERS Safety Report 5960059-7 (Version None)
Quarter: 2008Q4

REPORT INFORMATION
  Report Type: 
  Country: None (occurrence: None)
  Receive Date: 20081120
  Receipt Date: 20081113
  Transmission Date: 20090506
  Serious: No
  Sender: FDA-Public Use
  Company Number: US-PFIZER INC-2008019430

PATIENT
  Sex: Female

DRUGS (2)
  1. LIPITOR [Suspect]
     Route: 048
  2. CELECOXIB [Suspect]
     Indication: PAIN
     Route: 048
     Dates: start: 20020101

REACTIONS (1)
  - NO ADVERSE EVENT [None]
